FAERS Safety Report 10167445 (Version 2)
Quarter: 2014Q2

REPORT INFORMATION
  Report Type: Spontaneous
  Country: US (occurrence: US)
  Receive Date: 20140512
  Receipt Date: 20140523
  Transmission Date: 20141212
  Serious: Yes (Hospitalization, Other)
  Sender: FDA-Public Use
  Company Number: US-ABBVIE-14P-163-1233747-00

PATIENT
  Age: 52 Year
  Sex: Female
  Weight: 54.93 kg

DRUGS (12)
  1. HUMIRA [Suspect]
     Indication: ANKYLOSING SPONDYLITIS
     Dates: start: 201212, end: 201303
  2. HUMIRA [Suspect]
     Indication: RHEUMATOID ARTHRITIS
     Dates: start: 20140502
  3. HUMIRA [Suspect]
     Indication: FIBROMYALGIA
  4. HUMIRA [Suspect]
     Indication: NERVE INJURY
  5. HUMIRA [Suspect]
     Indication: PAIN
  6. PROTONIX [Concomitant]
     Indication: GASTROOESOPHAGEAL REFLUX DISEASE
  7. RITALIN [Concomitant]
     Indication: ASTHENIA
  8. ESTROGEN [Concomitant]
     Indication: HORMONE REPLACEMENT THERAPY
  9. GABAPENTIN [Concomitant]
     Indication: NEURALGIA
  10. TRAZODONE [Concomitant]
     Indication: INSOMNIA
  11. BACLOFEN [Concomitant]
     Indication: MUSCLE SPASMS
  12. VALIUM [Concomitant]
     Indication: ANXIETY

REACTIONS (12)
  - Neck mass [Recovered/Resolved]
  - Axillary mass [Recovered/Resolved]
  - Inguinal mass [Recovered/Resolved]
  - Malaise [Recovered/Resolved]
  - Hypophagia [Recovered/Resolved]
  - Pyrexia [Recovered/Resolved]
  - Headache [Recovered/Resolved]
  - Pneumonia [Recovered/Resolved]
  - Lymphocytic leukaemia [Recovered/Resolved]
  - Headache [Not Recovered/Not Resolved]
  - Abdominal pain [Not Recovered/Not Resolved]
  - Abdominal distension [Not Recovered/Not Resolved]
